FAERS Safety Report 17115022 (Version 1)
Quarter: 2019Q4

REPORT INFORMATION
  Report Type: Spontaneous
  Country: US (occurrence: US)
  Receive Date: 20191201
  Receipt Date: 20191201
  Transmission Date: 20200122
  Serious: No
  Sender: FDA-Public Use
  Company Number: None

PATIENT
  Age: 21 Year
  Sex: Female
  Weight: 58.5 kg

DRUGS (1)
  1. CYPROHEPTADINE LYSINE AND VITAMINS SYRUP - APETAMIN [Suspect]
     Active Substance: CYPROHEPTADINE HYDROCHLORIDE\LYSINE HYDROCHLORIDE\VITAMINS
     Indication: WEIGHT INCREASED
     Route: 048
     Dates: start: 20191101, end: 20191120

REACTIONS (2)
  - Headache [None]
  - Dizziness [None]

NARRATIVE: CASE EVENT DATE: 20191130
